FAERS Safety Report 14401578 (Version 1)
Quarter: 2018Q1

REPORT INFORMATION
  Report Type: Spontaneous
  Country: US (occurrence: US)
  Receive Date: 20180117
  Receipt Date: 20180117
  Transmission Date: 20180509
  Serious: No
  Sender: FDA-Public Use
  Company Number: US-009507513-1801USA002253

PATIENT
  Age: 75 Year
  Sex: Male

DRUGS (6)
  1. PREDNISONE. [Concomitant]
     Active Substance: PREDNISONE
     Indication: SYSTEMIC MASTOCYTOSIS
     Dosage: UNK
  2. DIPHENHYDRAMINE. [Concomitant]
     Active Substance: DIPHENHYDRAMINE
     Indication: SYSTEMIC MASTOCYTOSIS
  3. SINGULAIR [Suspect]
     Active Substance: MONTELUKAST SODIUM
     Indication: SYSTEMIC MASTOCYTOSIS
     Dosage: UNK
     Route: 048
  4. ASPIRIN. [Concomitant]
     Active Substance: ASPIRIN
     Dosage: 162 MG, QD
  5. RANITIDINE. [Concomitant]
     Active Substance: RANITIDINE
     Indication: SYSTEMIC MASTOCYTOSIS
     Dosage: UNK
  6. NAPROXEN. [Concomitant]
     Active Substance: NAPROXEN
     Dosage: UNK, AS NEEDED

REACTIONS (1)
  - Off label use [Unknown]
